FAERS Safety Report 4330097-9 (Version None)
Quarter: 2004Q1

REPORT INFORMATION
  Report Type: 
  Country: None (occurrence: None)
  Receive Date: 20040329
  Receipt Date: 20040319
  Transmission Date: 20041129
  Serious: Yes (Death, Hospitalization)
  Sender: FDA-Public Use
  Company Number: 200410848GDS

PATIENT
  Age: 39 Year
  Sex: Female

DRUGS (3)
  1. NIFEDIPINE [Suspect]
     Indication: ANGINA PECTORIS
     Dosage: 80 MG, TOTAL DAILY, ORAL
     Route: 048
  2. ISOSORBIDE DINITRATE [Concomitant]
  3. NICORANDIL [Concomitant]

REACTIONS (5)
  - ANGINA UNSTABLE [None]
  - ELECTROCARDIOGRAM ST SEGMENT ELEVATION [None]
  - MULTI-ORGAN FAILURE [None]
  - VASOSPASM [None]
  - VENTRICULAR FIBRILLATION [None]
